FAERS Safety Report 4997071-0 (Version None)
Quarter: 2006Q2

REPORT INFORMATION
  Report Type: 
  Country: None (occurrence: None)
  Receive Date: 20060508
  Receipt Date: 20060508
  Transmission Date: 20061013
  Serious: Yes (Hospitalization)
  Sender: FDA-Public Use
  Company Number: None

PATIENT
  Sex: Male
  Weight: 61 kg

DRUGS (2)
  1. CARBOPLATIN [Suspect]
     Indication: NON-SMALL CELL LUNG CANCER
     Dosage: 166 MG
     Dates: start: 20060424
  2. TAXOL [Suspect]
     Dosage: 84 MG
     Dates: start: 20060424

REACTIONS (2)
  - ODYNOPHAGIA [None]
  - ORAL INTAKE REDUCED [None]
